FAERS Safety Report 6819315-2 (Version None)
Quarter: 2010Q3

REPORT INFORMATION
  Report Type: 
  Country: None (occurrence: None)
  Receive Date: 20100707
  Receipt Date: 20100630
  Transmission Date: 20110219
  Serious: Yes (Other)
  Sender: FDA-Public Use
  Company Number: JP-BAYER-201011950BYL

PATIENT
  Age: 70 Year
  Sex: Male

DRUGS (4)
  1. NEXAVAR [Suspect]
     Indication: HEPATIC NEOPLASM MALIGNANT
     Dosage: TOTAL DAILY DOSE: 400 MG  UNIT DOSE: 200 MG
     Route: 048
     Dates: start: 20100407, end: 20100611
  2. AMLODIN [Concomitant]
     Indication: HYPERTENSION
     Route: 048
  3. AMLODIN [Concomitant]
     Route: 048
  4. BLOPRESS [Concomitant]
     Indication: HYPERTENSION
     Route: 048

REACTIONS (5)
  - DECREASED APPETITE [None]
  - DELIRIUM [None]
  - HEPATIC ENCEPHALOPATHY [None]
  - HYPERTENSION [None]
  - RENAL IMPAIRMENT [None]
